FAERS Safety Report 9158845 (Version 1)
Quarter: 2013Q1

REPORT INFORMATION
  Report Type: Spontaneous
  Country: DE (occurrence: DE)
  Receive Date: 20130313
  Receipt Date: 20130313
  Transmission Date: 20140127
  Serious: Yes (Other)
  Sender: FDA-Public Use
  Company Number: DE-AMGEN-DEUSP2013016468

PATIENT
  Sex: Male

DRUGS (3)
  1. NEULASTA [Suspect]
     Indication: PRODUCT USED FOR UNKNOWN INDICATION
     Dosage: UNK
  2. CISPLATIN [Concomitant]
     Indication: BRONCHIAL CARCINOMA
     Dosage: UNK
  3. VINORELBIN [Concomitant]
     Indication: BRONCHIAL CARCINOMA
     Dosage: UNK

REACTIONS (1)
  - Febrile neutropenia [Unknown]
